FAERS Safety Report 7467986-2 (Version None)
Quarter: 2011Q2

REPORT INFORMATION
  Report Type: 
  Country: None (occurrence: None)
  Receive Date: 20110509
  Receipt Date: 20110429
  Transmission Date: 20111010
  Serious: Yes (Hospitalization)
  Sender: FDA-Public Use
  Company Number: US-AMGEN-USASP2011022375

PATIENT
  Age: 68 Year
  Sex: Female

DRUGS (1)
  1. ENBREL [Suspect]
     Indication: RHEUMATOID ARTHRITIS
     Dosage: 50 MG, QWK
     Dates: start: 19981201

REACTIONS (17)
  - HEADACHE [None]
  - DIZZINESS [None]
  - STAPHYLOCOCCAL INFECTION [None]
  - CATARACT [None]
  - BACTERIAL INFECTION [None]
  - CONCUSSION [None]
  - IMPAIRED HEALING [None]
  - BRONCHITIS [None]
  - INFECTION [None]
  - CELLULITIS [None]
  - CLOSTRIDIAL INFECTION [None]
  - LIMB INJURY [None]
  - LACERATION [None]
  - HEAD INJURY [None]
  - ACCIDENT [None]
  - WOUND [None]
  - RHEUMATOID ARTHRITIS [None]
